FAERS Safety Report 19856277 (Version 2)
Quarter: 2021Q3

REPORT INFORMATION
  Report Type: Spontaneous
  Country: GB (occurrence: GB)
  Receive Date: 20210920
  Receipt Date: 20210924
  Transmission Date: 20211014
  Serious: Yes (Other)
  Sender: FDA-Public Use
  Company Number: GB-TEVA-2021-GB-1953583

PATIENT
  Age: 76 Year
  Sex: Female
  Weight: 76.2 kg

DRUGS (8)
  1. NATECAL D3 [Concomitant]
     Active Substance: CALCIUM CARBONATE\CHOLECALCIFEROL
     Dosage: 600MG/400IU
  2. INDAPAMIDE. [Suspect]
     Active Substance: INDAPAMIDE
     Indication: HYPERTENSION
     Dosage: 2.5MG
     Route: 065
  3. SOLPADOL [Concomitant]
     Dosage: TO ASSIST SLEEP, 0.5DOSAGE FORMS
  4. VITAMIN AND MINERAL SUPPLEMENT [Concomitant]
     Dosage: NOW STOPPED
  5. DIAGEMET [Concomitant]
     Dosage: 500 MILLIGRAM DAILY;
  6. LOSARTAN POTASSIUM. [Suspect]
     Active Substance: LOSARTAN POTASSIUM
     Indication: BLOOD PRESSURE INCREASED
     Dosage: WAS 75MG INCREASED EARLY 2021 TO 75MG
     Route: 048
     Dates: start: 1972
  7. KRKA DD LANSOPRAZOLE GASTRO?RESISTANT [Concomitant]
     Dosage: TAKEN OCCASIONALLY, 15MG
  8. VITAMIN D [Concomitant]
     Active Substance: VITAMIN D NOS
     Dosage: 1000IU(25UG), 1 DOSAGE FORMS

REACTIONS (4)
  - Sleep disorder [Not Recovered/Not Resolved]
  - Paraesthesia [Not Recovered/Not Resolved]
  - Burning feet syndrome [Not Recovered/Not Resolved]
  - Hyperhidrosis [Not Recovered/Not Resolved]

NARRATIVE: CASE EVENT DATE: 1980
